FAERS Safety Report 12385218 (Version 1)
Quarter: 2016Q2

REPORT INFORMATION
  Report Type: Report from Study
  Country: US (occurrence: US)
  Receive Date: 20160519
  Receipt Date: 20160519
  Transmission Date: 20160815
  Serious: Yes (Other)
  Sender: FDA-Public Use
  Company Number: PHHY2013US176006

PATIENT
  Sex: Female

DRUGS (16)
  1. LUCENTIS [Suspect]
     Active Substance: RANIBIZUMAB
     Indication: PRODUCT USED FOR UNKNOWN INDICATION
     Dosage: 0.3 MG, UNK
     Route: 065
  2. AVASTIN [Suspect]
     Active Substance: BEVACIZUMAB
     Dosage: 0.05 ML, OS
     Route: 031
     Dates: start: 20130521
  3. AVASTIN [Suspect]
     Active Substance: BEVACIZUMAB
     Dosage: 0.05 ML, OS
     Route: 031
     Dates: start: 20130618
  4. METFORMIN [Suspect]
     Active Substance: METFORMIN HYDROCHLORIDE
     Indication: PRODUCT USED FOR UNKNOWN INDICATION
     Dosage: 500 MG, Q12H
     Route: 048
  5. AVASTIN [Suspect]
     Active Substance: BEVACIZUMAB
     Dosage: 0.05 ML, OS
     Route: 031
     Dates: start: 20130402
  6. AVASTIN [Suspect]
     Active Substance: BEVACIZUMAB
     Dosage: 0.05 ML, OS
     Route: 031
     Dates: start: 20130903
  7. GLIMEPIRIDE. [Concomitant]
     Active Substance: GLIMEPIRIDE
     Indication: PRODUCT USED FOR UNKNOWN INDICATION
     Dosage: 2 MG, 1 IN 24 HR
     Route: 048
  8. AVASTIN [Suspect]
     Active Substance: BEVACIZUMAB
     Dosage: 0.05 ML, OS
     Route: 031
     Dates: start: 20130305
  9. TROPICAMIDE. [Concomitant]
     Active Substance: TROPICAMIDE
     Indication: PRODUCT USED FOR UNKNOWN INDICATION
     Dosage: 1 %, UNK
     Route: 065
  10. EYLEA [Concomitant]
     Active Substance: AFLIBERCEPT
     Indication: PRODUCT USED FOR UNKNOWN INDICATION
     Route: 065
  11. AVASTIN [Suspect]
     Active Substance: BEVACIZUMAB
     Indication: DIABETIC RETINOPATHY
     Dosage: 0.05 ML, LEFT EYE
     Route: 042
     Dates: start: 20130103
  12. AVASTIN [Suspect]
     Active Substance: BEVACIZUMAB
     Indication: DIABETIC RETINAL OEDEMA
     Dosage: 0.05 ML, OS
     Route: 031
     Dates: start: 20130205
  13. AVASTIN [Suspect]
     Active Substance: BEVACIZUMAB
     Dosage: 0.05 ML, OS
     Route: 031
     Dates: start: 20130716
  14. PHENYLEPHRINE [Concomitant]
     Active Substance: PHENYLEPHRINE\PHENYLEPHRINE HYDROCHLORIDE
     Indication: PRODUCT USED FOR UNKNOWN INDICATION
     Dosage: 2.5 %, UNK
     Route: 065
  15. JANUVIA [Concomitant]
     Active Substance: SITAGLIPTIN PHOSPHATE
     Indication: PRODUCT USED FOR UNKNOWN INDICATION
     Dosage: 100 MG, 1 IN 24 HR
     Route: 048
  16. SIMVASTATIN. [Concomitant]
     Active Substance: SIMVASTATIN
     Indication: PRODUCT USED FOR UNKNOWN INDICATION
     Dosage: 10 MG, 1 IN 24 HR, 1 TAB IN THE EVENING
     Route: 065

REACTIONS (5)
  - Retinal haemorrhage [Unknown]
  - Visual impairment [Unknown]
  - Cutis laxa [Unknown]
  - Macular oedema [Unknown]
  - Off label use [Unknown]
